FAERS Safety Report 19354782 (Version 1)
Quarter: 2021Q2

REPORT INFORMATION
  Report Type: Spontaneous
  Country: US (occurrence: US)
  Receive Date: 20210601
  Receipt Date: 20210601
  Transmission Date: 20210717
  Serious: Yes (Hospitalization)
  Sender: FDA-Public Use
  Company Number: None

PATIENT
  Sex: Female

DRUGS (12)
  1. AIMOVIG [Concomitant]
     Active Substance: ERENUMAB-AOOE
  2. OMEPRAZOLE. [Concomitant]
     Active Substance: OMEPRAZOLE
  3. HUMIRA [Suspect]
     Active Substance: ADALIMUMAB
     Indication: SPINAL OSTEOARTHRITIS
     Route: 058
     Dates: start: 20200818
  4. HYDROCO/APAP [Concomitant]
     Active Substance: ACETAMINOPHEN\HYDROCODONE
  5. METHOTREXATE. [Concomitant]
     Active Substance: METHOTREXATE
  6. PLAQUENIL [Concomitant]
     Active Substance: HYDROXYCHLOROQUINE SULFATE
  7. EFFEXOR XR [Concomitant]
     Active Substance: VENLAFAXINE HYDROCHLORIDE
  8. TOPAMAX [Concomitant]
     Active Substance: TOPIRAMATE
  9. ESTRADIOL. [Concomitant]
     Active Substance: ESTRADIOL
  10. FOLIC ACID. [Concomitant]
     Active Substance: FOLIC ACID
  11. TRAMADOL HCL [Concomitant]
     Active Substance: TRAMADOL HYDROCHLORIDE
  12. LYRICA [Concomitant]
     Active Substance: PREGABALIN

REACTIONS (4)
  - Depression [None]
  - Tooth extraction [None]
  - Therapy interrupted [None]
  - Spinal fusion surgery [None]
